FAERS Safety Report 5808656-3 (Version None)
Quarter: 2008Q3

REPORT INFORMATION
  Report Type: 
  Country: None (occurrence: None)
  Receive Date: 20080714
  Receipt Date: 20080710
  Transmission Date: 20090109
  Serious: Yes (Hospitalization)
  Sender: FDA-Public Use
  Company Number: CH-BRISTOL-MYERS SQUIBB COMPANY-14256259

PATIENT
  Age: 36 Year
  Sex: Male

DRUGS (7)
  1. TRITTICO [Suspect]
     Indication: ANXIETY DISORDER
     Route: 048
  2. DEROXAT [Suspect]
     Route: 048
  3. METHADONE HCL [Suspect]
  4. OXAZEPAM [Concomitant]
  5. MARCUMAR [Concomitant]
  6. MIDAZOLAM HCL [Concomitant]
     Dates: start: 20080507, end: 20080507
  7. RIVOTRIL [Concomitant]
     Dates: start: 20080507, end: 20080507

REACTIONS (3)
  - BRADYPNOEA [None]
  - SINUS BRADYCARDIA [None]
  - SOMNOLENCE [None]
